FAERS Safety Report 12441948 (Version 1)
Quarter: 2016Q2

REPORT INFORMATION
  Report Type: Spontaneous
  Country: US (occurrence: None)
  Receive Date: 20160606
  Receipt Date: 20160606
  Transmission Date: 20160815
  Serious: Yes (Hospitalization)
  Sender: FDA-Public Use
  Company Number: None

PATIENT
  Age: 55 Year
  Sex: Male
  Weight: 70.9 kg

DRUGS (5)
  1. CYCLOPHOSPHAMIDE. [Suspect]
     Active Substance: CYCLOPHOSPHAMIDE
     Dates: end: 20160429
  2. FLUDARABINE PHOSPHATE. [Concomitant]
     Active Substance: FLUDARABINE PHOSPHATE
     Dates: end: 20160429
  3. PROCHLORAPERAZINE [Concomitant]
  4. RITUXIMAB (MOAB C2BA ANTI CD29M CHIMERIC) [Suspect]
     Active Substance: RITUXIMAB
     Dates: end: 20160528
  5. OXYCODONE [Concomitant]
     Active Substance: OXYCODONE

REACTIONS (3)
  - Fall [None]
  - Deep vein thrombosis [None]
  - Peripheral swelling [None]

NARRATIVE: CASE EVENT DATE: 20160520
